FAERS Safety Report 10173970 (Version 5)
Quarter: 2015Q2

REPORT INFORMATION
  Report Type: Spontaneous
  Country: NZ (occurrence: NZ)
  Receive Date: 20140515
  Receipt Date: 20150610
  Transmission Date: 20150821
  Serious: Yes (Life-Threatening, Hospitalization, Other)
  Sender: FDA-Public Use
  Company Number: NZ-PFIZER INC-2014072170

PATIENT
  Age: 14 Month
  Sex: Male
  Weight: 10 kg

DRUGS (3)
  1. AMOXYCILLIN [Concomitant]
     Active Substance: AMOXICILLIN
     Dosage: 250 MG/5 ML, 3X/DAY 7 DAYS
     Route: 048
  2. PANADOL /00020001/ [Concomitant]
     Dosage: UNK, AS NEEDED
     Route: 048
  3. XYNTHA [Suspect]
     Active Substance: ANTIHEMOPHILIC FACTOR, HUMAN RECOMBINANT RESIDUES 743-1636 DELETED
     Indication: FACTOR VIII DEFICIENCY
     Dosage: 250 IU, WEEKLY
     Route: 042
     Dates: start: 20130528, end: 20131122

REACTIONS (3)
  - Factor VIII inhibition [Not Recovered/Not Resolved]
  - Haemorrhage [Recovered/Resolved]
  - Laceration [Recovered/Resolved]

NARRATIVE: CASE EVENT DATE: 20131120
